FAERS Safety Report 7660205-3 (Version None)
Quarter: 2011Q3

REPORT INFORMATION
  Report Type: 
  Country: None (occurrence: None)
  Receive Date: 20110805
  Receipt Date: 20110728
  Transmission Date: 20111222
  Serious: Yes (Other)
  Sender: FDA-Public Use
  Company Number: PHHY2010DE84650

PATIENT
  Sex: Male

DRUGS (1)
  1. RITALIN LA [Suspect]
     Indication: ATTENTION DEFICIT/HYPERACTIVITY DISORDER
     Dosage: 1 DF, QD
     Route: 048
     Dates: start: 20100901

REACTIONS (8)
  - HAEMATOCRIT DECREASED [None]
  - ALANINE AMINOTRANSFERASE INCREASED [None]
  - BLOOD LACTATE DEHYDROGENASE INCREASED [None]
  - HAEMOGLOBIN DECREASED [None]
  - ASPARTATE AMINOTRANSFERASE INCREASED [None]
  - HAEMOLYSIS [None]
  - BLOOD CREATINE PHOSPHOKINASE INCREASED [None]
  - LIVER FUNCTION TEST ABNORMAL [None]
